FAERS Safety Report 6533637-4 (Version None)
Quarter: 2010Q1

REPORT INFORMATION
  Report Type: 
  Country: None (occurrence: None)
  Receive Date: 20100108
  Receipt Date: 20100108
  Transmission Date: 20100710
  Serious: No
  Sender: FDA-Public Use
  Company Number: None

PATIENT
  Age: 46 Year
  Sex: Female

DRUGS (1)
  1. AVELOX [Suspect]
     Indication: INFECTION
     Dates: start: 20091001, end: 20091014

REACTIONS (4)
  - MYDRIASIS [None]
  - NO THERAPEUTIC RESPONSE [None]
  - PHOTOPHOBIA [None]
  - VISION BLURRED [None]
